FAERS Safety Report 5328660-1 (Version None)
Quarter: 2007Q2

REPORT INFORMATION
  Report Type: 
  Country: None (occurrence: None)
  Receive Date: 20070518
  Receipt Date: 20070516
  Transmission Date: 20071010
  Serious: Yes (Disabling)
  Sender: FDA-Public Use
  Company Number: A0638918A

PATIENT
  Age: 70 Year
  Sex: Female

DRUGS (6)
  1. COREG [Suspect]
     Indication: HYPERTENSION
     Dosage: 12.5MG TWICE PER DAY
     Route: 048
     Dates: end: 20070401
  2. COREG CR [Suspect]
     Indication: HYPERTENSION
     Dosage: 80MG PER DAY
     Route: 048
     Dates: start: 20070401
  3. HYDRODIURIL [Concomitant]
  4. TENORMIN [Concomitant]
     Dates: end: 20070401
  5. ASPIRIN [Concomitant]
  6. BENADRYL [Concomitant]

REACTIONS (3)
  - GINGIVAL RECESSION [None]
  - TINNITUS [None]
  - TONGUE OEDEMA [None]
